FAERS Safety Report 14757626 (Version 1)
Quarter: 2018Q2

REPORT INFORMATION
  Report Type: Spontaneous
  Country: US (occurrence: US)
  Receive Date: 20180413
  Receipt Date: 20180413
  Transmission Date: 20180711
  Serious: No
  Sender: FDA-Public Use
  Company Number: US-ASTRAZENECA-2018SE34250

PATIENT
  Sex: Male
  Weight: 72.6 kg

DRUGS (5)
  1. COREG [Concomitant]
     Active Substance: CARVEDILOL
     Indication: HYPERTENSION
  2. GABAPENTIN. [Concomitant]
     Active Substance: GABAPENTIN
     Indication: ILL-DEFINED DISORDER
     Dosage: TWO 800 MG TWICE A DAY IN THE MORNING AND AT NOON
  3. ZIPRASIDONE HYDROCHLORIDE. [Suspect]
     Active Substance: ZIPRASIDONE HYDROCHLORIDE
     Indication: SCHIZOAFFECTIVE DISORDER BIPOLAR TYPE
     Dosage: GENERIC TWO 80 MG DAILY
     Route: 048
     Dates: start: 2015
  4. SEROQUEL [Suspect]
     Active Substance: QUETIAPINE FUMARATE
     Route: 048
  5. CLONOPIN [Concomitant]
     Active Substance: CLONAZEPAM

REACTIONS (3)
  - Hallucinations, mixed [Unknown]
  - Weight increased [Unknown]
  - Anxiety [Unknown]
